FAERS Safety Report 8506155-1 (Version None)
Quarter: 2012Q3

REPORT INFORMATION
  Report Type: 
  Country: None (occurrence: None)
  Receive Date: 20120712
  Receipt Date: 20110816
  Transmission Date: 20120928
  Serious: No
  Sender: FDA-Public Use
  Company Number: US-MUTUAL PHARMACEUTICAL COMPANY, INC.-IMPR20110002

PATIENT
  Sex: Male
  Weight: 62.198 kg

DRUGS (8)
  1. IMIPRAMINE HYDROCHLORIDE [Suspect]
     Indication: ANXIETY
     Route: 048
     Dates: start: 20110701, end: 20110808
  2. LEXAPRO [Suspect]
     Indication: DEPRESSION
     Route: 048
     Dates: start: 20100101
  3. IMIPRAMINE HYDROCHLORIDE [Suspect]
     Indication: DEPRESSION
  4. IMIPRAMINE HYDROCHLORIDE [Suspect]
     Indication: DEPRESSION
     Route: 048
     Dates: start: 20100101, end: 20110701
  5. IMIPRAMINE HYDROCHLORIDE [Suspect]
     Indication: ANXIETY
     Route: 048
     Dates: start: 20090101, end: 20100101
  6. LEXAPRO [Suspect]
     Indication: ANXIETY
  7. CLONAZEPAM [Concomitant]
     Indication: ANXIETY
     Route: 048
  8. BENAZEPRIL HYDROCHLORIDE [Concomitant]
     Indication: HYPERTENSION
     Route: 048

REACTIONS (7)
  - ANXIETY [None]
  - DEPRESSION [None]
  - OFF LABEL USE [None]
  - HEADACHE [None]
  - DRUG WITHDRAWAL SYNDROME [None]
  - ABNORMAL DREAMS [None]
  - DRUG INEFFECTIVE [None]
